FAERS Safety Report 10523149 (Version 1)
Quarter: 2014Q4

REPORT INFORMATION
  Report Type: Spontaneous
  Country: FR (occurrence: FR)
  Receive Date: 20141016
  Receipt Date: 20141016
  Transmission Date: 20150528
  Serious: Yes (Hospitalization, Other)
  Sender: FDA-Public Use
  Company Number: PHHY2014FR134403

PATIENT
  Age: 28 Year
  Sex: Female

DRUGS (11)
  1. LOXEN [Suspect]
     Active Substance: NICARDIPINE HYDROCHLORIDE
     Indication: TOCOLYSIS
     Route: 042
  2. CELESTENE [Suspect]
     Active Substance: BETAMETHASONE
     Indication: MATERNAL THERAPY TO ENHANCE FOETAL LUNG MATURITY
     Dosage: 12 MG, UNK
     Route: 030
  3. TRACTOCILE [Suspect]
     Active Substance: ATOSIBAN
     Route: 042
  4. CELESTENE [Suspect]
     Active Substance: BETAMETHASONE
     Dosage: 12 MG, UNK
     Route: 030
  5. TRACTOCILE [Suspect]
     Active Substance: ATOSIBAN
     Indication: TOCOLYSIS
     Route: 042
  6. LOXEN [Suspect]
     Active Substance: NICARDIPINE HYDROCHLORIDE
     Dosage: 4 MG, PER HOUR
     Route: 042
  7. LASILIX [Suspect]
     Active Substance: FUROSEMIDE
     Indication: ACUTE PULMONARY OEDEMA
     Dosage: 250 MG, PER 24 HOURS
     Route: 065
  8. LASILIX [Suspect]
     Active Substance: FUROSEMIDE
     Dosage: 80 MG, UNK
     Route: 065
  9. ADALAT [Suspect]
     Active Substance: NIFEDIPINE
     Indication: TOCOLYSIS
     Route: 048
  10. LOXEN [Suspect]
     Active Substance: NICARDIPINE HYDROCHLORIDE
     Dosage: 3 MG, PER HOUR
     Route: 042
  11. SALBUTAMOL [Suspect]
     Active Substance: ALBUTEROL
     Indication: TOCOLYSIS
     Route: 048

REACTIONS (18)
  - Left ventricular dysfunction [Unknown]
  - Left ventricular end-diastolic pressure increased [Unknown]
  - Visual impairment [Unknown]
  - Respiratory distress [Unknown]
  - Tachypnoea [Unknown]
  - Acute pulmonary oedema [Recovering/Resolving]
  - Pleural effusion [Unknown]
  - Hypoxia [Unknown]
  - Back pain [Unknown]
  - Overdose [Unknown]
  - Premature labour [Unknown]
  - Maternal exposure during pregnancy [Unknown]
  - Headache [Unknown]
  - Mitral valve incompetence [Unknown]
  - Photophobia [Unknown]
  - Hypoventilation [Unknown]
  - Respiratory alkalosis [Unknown]
  - Pulmonary hypertension [Unknown]
